FAERS Safety Report 6297231-5 (Version None)
Quarter: 2009Q3

REPORT INFORMATION
  Report Type: 
  Country: None (occurrence: None)
  Receive Date: 20090805
  Receipt Date: 20080107
  Transmission Date: 20100115
  Serious: Yes (Other)
  Sender: FDA-Public Use
  Company Number: US-ASTRAZENECA-2006UW23736

PATIENT
  Age: 17765 Day
  Sex: Female
  Weight: 98.9 kg

DRUGS (18)
  1. SEROQUEL [Suspect]
     Indication: SLEEP DISORDER
     Route: 048
     Dates: start: 20040101, end: 20060101
  2. SEROQUEL [Suspect]
     Indication: DEPRESSION
     Route: 048
     Dates: start: 20040101, end: 20060101
  3. SEROQUEL [Suspect]
     Dosage: 50 TO 1000 MG
     Route: 048
     Dates: start: 20050331
  4. SEROQUEL [Suspect]
     Dosage: 50 TO 1000 MG
     Route: 048
     Dates: start: 20050331
  5. ABILIFY [Concomitant]
  6. RISPERDAL [Concomitant]
  7. ZYPREXA [Concomitant]
  8. AVANDIA [Concomitant]
     Route: 048
     Dates: start: 20020828
  9. TOPROL-XL [Concomitant]
     Dosage: 100 TO 150 MG
     Route: 048
     Dates: start: 20020828
  10. HYDROCHLOROTHIAZIDE [Concomitant]
     Route: 048
     Dates: start: 20051217
  11. LEXAPRO [Concomitant]
     Dosage: 15 TO 20 MG
     Route: 048
     Dates: start: 20030911
  12. AMBIEN [Concomitant]
     Dosage: 5 TO 10 MG
     Route: 048
     Dates: start: 20030904
  13. ATIVAN [Concomitant]
     Route: 048
     Dates: start: 20030911
  14. RESTORIL [Concomitant]
     Route: 048
     Dates: start: 20031027
  15. NORTRIPTYLINE HCL [Concomitant]
     Dosage: 25 TO 75 MG
     Route: 048
     Dates: start: 20031027
  16. CRESTOR [Concomitant]
     Route: 048
     Dates: start: 20051116
  17. PREMARIN [Concomitant]
     Dosage: 0.45 TO 0.625 MG
     Route: 048
     Dates: start: 20050331
  18. LAMICTAL [Concomitant]
     Dosage: 75 TO 200 MG
     Route: 048
     Dates: start: 20051115

REACTIONS (4)
  - DIABETES MELLITUS [None]
  - DIABETES MELLITUS INADEQUATE CONTROL [None]
  - DIABETIC NEUROPATHY [None]
  - INSULIN-REQUIRING TYPE 2 DIABETES MELLITUS [None]
